FAERS Safety Report 17099866 (Version 1)
Quarter: 2019Q4

REPORT INFORMATION
  Report Type: Spontaneous
  Country: US (occurrence: US)
  Receive Date: 20191202
  Receipt Date: 20191202
  Transmission Date: 20200122
  Serious: Yes (Hospitalization)
  Sender: FDA-Public Use
  Company Number: US-OTSUKA-2019_039865

PATIENT
  Age: 84 Year
  Sex: Female

DRUGS (1)
  1. TOLVAPTAN [Suspect]
     Active Substance: TOLVAPTAN
     Indication: BLOOD SODIUM DECREASED
     Dosage: 7.5 MG, UNK
     Route: 065
     Dates: start: 201910

REACTIONS (4)
  - Product use in unapproved indication [Unknown]
  - Blood sodium decreased [Unknown]
  - Inability to afford medication [Unknown]
  - Underdose [Unknown]

NARRATIVE: CASE EVENT DATE: 201910
